FAERS Safety Report 6136653-X (Version None)
Quarter: 2009Q1

REPORT INFORMATION
  Report Type: 
  Country: None (occurrence: None)
  Receive Date: 20090330
  Receipt Date: 20090320
  Transmission Date: 20090719
  Serious: Yes (Other)
  Sender: FDA-Public Use
  Company Number: B0565971A

PATIENT
  Age: 4 Year
  Sex: Female

DRUGS (4)
  1. CLENIL MODULITE [Suspect]
     Dosage: 200MCG PER DAY
     Route: 055
     Dates: start: 20090105, end: 20090309
  2. FLIXONASE [Concomitant]
     Route: 065
     Dates: end: 20090303
  3. SALBUTAMOL [Concomitant]
     Route: 065
  4. MONTELUKAST [Concomitant]
     Route: 065

REACTIONS (6)
  - ANXIETY [None]
  - DEPRESSION [None]
  - LETHARGY [None]
  - MOOD SWINGS [None]
  - SELF-INJURIOUS IDEATION [None]
  - SLEEP DISORDER [None]
